FAERS Safety Report 5604748-2 (Version None)
Quarter: 2008Q1

REPORT INFORMATION
  Report Type: 
  Country: None (occurrence: None)
  Receive Date: 20080128
  Receipt Date: 20080118
  Transmission Date: 20080703
  Serious: Yes (Hospitalization, Other)
  Sender: FDA-Public Use
  Company Number: PHBS2007JP21064

PATIENT
  Age: 63 Year
  Sex: Female
  Weight: 55 kg

DRUGS (11)
  1. MEVALOTIN [Concomitant]
     Dosage: 10 MG, UNK
     Route: 048
     Dates: start: 20070808
  2. RABEPRAZOLE SODIUM [Concomitant]
     Dosage: 10 MG, UNK
     Route: 048
     Dates: start: 20031216
  3. GASMOTIN [Concomitant]
     Dosage: 15 MG, UNK
     Route: 048
     Dates: start: 20031216
  4. PRIMPERAN INJ [Concomitant]
     Dosage: 15 MG, UNK
     Route: 048
     Dates: start: 20031216
  5. DIOVAN [Suspect]
     Indication: HYPERTENSION
     Dosage: 80 MG, QD
     Route: 048
     Dates: start: 20071128
  6. SEREVENT [Concomitant]
     Dosage: 100 UG
     Dates: start: 20071206
  7. SALMETEROL XINAFOATE [Concomitant]
     Dates: start: 20071205
  8. LOXONIN [Concomitant]
     Dosage: 180 MG, UNK
     Route: 048
     Dates: start: 20031216
  9. KIPRES [Concomitant]
     Dosage: 10 MG, UNK
     Route: 048
     Dates: start: 20040706
  10. FLUTIDE [Concomitant]
     Dosage: 400 UG, UNK
     Route: 048
     Dates: start: 20040418
  11. PAXIL [Concomitant]
     Dosage: 20 MG, UNK
     Route: 048
     Dates: start: 20031216

REACTIONS (8)
  - ASTHENIA [None]
  - ASTHMA [None]
  - CEREBRAL INFARCTION [None]
  - COMPUTERISED TOMOGRAM ABNORMAL [None]
  - GAIT DISTURBANCE [None]
  - HYPERTENSION [None]
  - NO THERAPEUTIC RESPONSE [None]
  - VASCULITIS [None]
